FAERS Safety Report 11925692 (Version 1)
Quarter: 2016Q1

REPORT INFORMATION
  Report Type: Spontaneous
  Country: DK (occurrence: DK)
  Receive Date: 20160118
  Receipt Date: 20160118
  Transmission Date: 20160526
  Serious: Yes (Other)
  Sender: FDA-Public Use
  Company Number: PHHY2016DK004579

PATIENT
  Age: 43 Year
  Sex: Female
  Weight: 81 kg

DRUGS (2)
  1. GILENYA [Suspect]
     Active Substance: FINGOLIMOD HYDROCHLORIDE
     Indication: MULTIPLE SCLEROSIS
     Dosage: 0.5 MG, QD
     Route: 048
     Dates: start: 20141209, end: 20160112
  2. METFORMIN BLUEFISH [Concomitant]
     Indication: DIABETES MELLITUS
     Route: 048
     Dates: start: 20070101

REACTIONS (2)
  - Macular oedema [Not Recovered/Not Resolved]
  - Retinal haemorrhage [Unknown]

NARRATIVE: CASE EVENT DATE: 20151101
